FAERS Safety Report 9453592 (Version 1)
Quarter: 2013Q3

REPORT INFORMATION
  Report Type: Spontaneous
  Country: BR (occurrence: BR)
  Receive Date: 20130812
  Receipt Date: 20130812
  Transmission Date: 20140515
  Serious: Yes (Death)
  Sender: FDA-Public Use
  Company Number: BR-PFIZER INC-2013198182

PATIENT
  Sex: Female

DRUGS (1)
  1. SUTENT [Suspect]
     Indication: RENAL CANCER
     Dosage: 50 MG (1 CAPSULE), 1X/DAY
     Route: 048
     Dates: start: 20130619, end: 20130711

REACTIONS (3)
  - Death [Fatal]
  - Abdominal pain upper [Unknown]
  - Vomiting [Unknown]
